FAERS Safety Report 12384763 (Version 1)
Quarter: 2016Q2

REPORT INFORMATION
  Report Type: Spontaneous
  Country: US (occurrence: US)
  Receive Date: 20160519
  Receipt Date: 20160519
  Transmission Date: 20160815
  Serious: No
  Sender: FDA-Public Use
  Company Number: US-APOTEX-2015AP014083

PATIENT
  Sex: Male

DRUGS (1)
  1. QUETIAPINE FUMARATE. [Suspect]
     Active Substance: QUETIAPINE FUMARATE
     Indication: PRODUCT USED FOR UNKNOWN INDICATION
     Dosage: 3 DF, Q.H.S.
     Route: 065

REACTIONS (5)
  - Feeling abnormal [Unknown]
  - Dyspepsia [Unknown]
  - Depression [Unknown]
  - Confusional state [Unknown]
  - Drug ineffective [Unknown]
